FAERS Safety Report 6863249-4 (Version None)
Quarter: 2010Q3

REPORT INFORMATION
  Report Type: 
  Country: None (occurrence: None)
  Receive Date: 20100721
  Receipt Date: 20100716
  Transmission Date: 20110219
  Serious: Yes (Death)
  Sender: FDA-Public Use
  Company Number: PHHY2010NL47070

PATIENT
  Age: 78 Year
  Sex: Male
  Weight: 75 kg

DRUGS (2)
  1. ALISKIREN ALI+TAB [Suspect]
     Dosage: 150 MG DAILY
  2. BETA BLOCKING AGENTS [Concomitant]

REACTIONS (1)
  - DEATH [None]
